FAERS Safety Report 5019221-2 (Version None)
Quarter: 2006Q2

REPORT INFORMATION
  Report Type: 
  Country: None (occurrence: None)
  Receive Date: 20060606
  Receipt Date: 20060407
  Transmission Date: 20061013
  Serious: Yes (Other)
  Sender: FDA-Public Use
  Company Number: CA-SANOFI-SYNTHELABO-A01200602772

PATIENT
  Age: 49 Year
  Sex: Male

DRUGS (2)
  1. PROPECIA [Concomitant]
     Indication: ALOPECIA
     Dosage: 1 MG
     Route: 048
  2. XATRAL [Suspect]
     Indication: BLADDER DISORDER
     Route: 048
     Dates: start: 20060405, end: 20060405

REACTIONS (12)
  - CONFUSIONAL STATE [None]
  - CONVULSION [None]
  - DYSPNOEA [None]
  - FEELING HOT [None]
  - HEADACHE [None]
  - INSOMNIA [None]
  - JOINT SPRAIN [None]
  - LOSS OF CONSCIOUSNESS [None]
  - MUSCLE SPASMS [None]
  - MUSCULOSKELETAL STIFFNESS [None]
  - TREMOR [None]
  - VOMITING [None]
